FAERS Safety Report 9931802 (Version 1)
Quarter: 2014Q1

REPORT INFORMATION
  Report Type: Spontaneous
  Country: US (occurrence: None)
  Receive Date: 20140219
  Receipt Date: 20140219
  Transmission Date: 20141002
  Serious: Yes (Other)
  Sender: FDA-Public Use
  Company Number: 2250051-2014-00005

PATIENT
  Age: 26 Year
  Sex: Female

DRUGS (1)
  1. RHOGAM [Suspect]
     Indication: PRENATAL CARE
     Dates: start: 19961023

REACTIONS (5)
  - Maternal exposure during pregnancy [None]
  - Parkinsonism [None]
  - Creutzfeldt-Jakob disease [None]
  - Tremor [None]
  - Skin discolouration [None]
